FAERS Safety Report 7982910-1 (Version None)
Quarter: 2011Q4

REPORT INFORMATION
  Report Type: 
  Country: None (occurrence: None)
  Receive Date: 20111215
  Receipt Date: 20111202
  Transmission Date: 20120403
  Serious: Yes (Life-Threatening, Hospitalization, Other)
  Sender: FDA-Public Use
  Company Number: GXKR2008DK08236

PATIENT
  Sex: Female
  Weight: 65.5 kg

DRUGS (11)
  1. CYTARABINE [Suspect]
     Route: 048
  2. DEXAMETHASONE SODIUM PHOSPHATE [Suspect]
     Route: 048
  3. NOXAFIL [Interacting]
     Indication: HEPATOSPLENIC CANDIDIASIS
     Dosage: 200 MG, QID
     Route: 048
     Dates: start: 20071020, end: 20080125
  4. ACYCLOVIR [Suspect]
     Dosage: 200 MG, UNK
     Route: 048
  5. VOGALENE [Suspect]
     Route: 048
  6. POTASSIUM CHLORIDE [Suspect]
     Route: 048
  7. ETOPOSIDE [Suspect]
     Route: 048
  8. ANTIFUNGALS [Suspect]
     Route: 065
  9. ONDANSETRON [Interacting]
     Route: 048
     Dates: start: 20080122, end: 20080125
  10. PANTOPRAZOLE SODIUM [Suspect]
     Route: 048
     Dates: start: 20080122, end: 20080125
  11. ALLOPURINOL [Suspect]
     Route: 048

REACTIONS (7)
  - DRUG INTERACTION [None]
  - ARRHYTHMIA [None]
  - BRADYCARDIA [None]
  - SINUS TACHYCARDIA [None]
  - ATRIOVENTRICULAR BLOCK SECOND DEGREE [None]
  - BRADYARRHYTHMIA [None]
  - SINOATRIAL BLOCK [None]
